FAERS Safety Report 16439135 (Version 1)
Quarter: 2019Q2

REPORT INFORMATION
  Report Type: Spontaneous
  Country: US (occurrence: US)
  Receive Date: 20190617
  Receipt Date: 20190617
  Transmission Date: 20190711
  Serious: Yes (Hospitalization)
  Sender: FDA-Public Use
  Company Number: US-PFIZER INC-2016470086

PATIENT
  Age: 48 Year
  Sex: Male
  Weight: 82 kg

DRUGS (18)
  1. TRENTAL [Concomitant]
     Active Substance: PENTOXIFYLLINE
     Indication: FIBROSIS
     Dosage: 400 MG, DAILY
     Dates: start: 20190509
  2. LYRICA [Suspect]
     Active Substance: PREGABALIN
     Dosage: 150 MG, 3X/DAY (150MG TOTAL (1 CAPSULE) EVERY 8 HOURS)
     Route: 048
     Dates: start: 20171023
  3. DILAUDID [Concomitant]
     Active Substance: HYDROMORPHONE HYDROCHLORIDE
     Indication: PAIN
     Dosage: 4 MG, AS NEEDED
  4. VALIUM [Concomitant]
     Active Substance: DIAZEPAM
     Indication: FEELING OF RELAXATION
     Dosage: 5 MG, AS NEEDED
  5. LYRICA [Suspect]
     Active Substance: PREGABALIN
     Dosage: 150 MG, 3X/DAY (150MG TOTAL (1 CAPSULE) BY MOUTH EVERY 8 HOURS)
     Route: 048
     Dates: start: 20180823
  6. LYRICA [Suspect]
     Active Substance: PREGABALIN
     Dosage: 150 MG, 3X/DAY (150MG TOTAL (1 CAPSULE) BY MOUTH EVERY 8 HOURS)
     Route: 048
     Dates: start: 20190110
  7. VITAMIIN A [Concomitant]
     Indication: SCAR
     Dosage: 1500 UG, DAILY
     Dates: start: 20190509
  8. WELLBUTRIN [Concomitant]
     Active Substance: BUPROPION HYDROCHLORIDE
     Indication: DEPRESSION
     Dosage: 300 MG, DAILY
     Dates: start: 2018
  9. XANAX [Concomitant]
     Active Substance: ALPRAZOLAM
     Indication: SLEEP DISORDER
     Dosage: 0.5 MG, DAILY
  10. XANAX [Concomitant]
     Active Substance: ALPRAZOLAM
     Indication: PAIN
  11. LYRICA [Suspect]
     Active Substance: PREGABALIN
     Indication: NEUROPATHY PERIPHERAL
     Dosage: 150 MG, 4X/DAY (150 MG TOTAL (1 CAPSULE) BY MOUTH EVERY 6 HOURS)
     Route: 048
     Dates: start: 20170327, end: 2017
  12. LEVOTHYROXINE. [Concomitant]
     Active Substance: LEVOTHYROXINE
     Indication: THYROID DISORDER
     Dosage: 50 UG, DAILY
  13. VITAMIN D [ERGOCALCIFEROL] [Concomitant]
     Active Substance: ERGOCALCIFEROL
     Indication: VITAMIN D DECREASED
     Dosage: 500 UG, DAILY
  14. FLOMAX [Concomitant]
     Active Substance: TAMSULOSIN HYDROCHLORIDE
     Indication: DYSURIA
  15. LOTENSINE [Concomitant]
     Active Substance: CAPTOPRIL
     Indication: BLOOD PRESSURE ABNORMAL
     Dosage: 10 MG, DAILY
  16. LYRICA [Suspect]
     Active Substance: PREGABALIN
     Dosage: 150 MG, 3X/DAY
     Route: 048
  17. FLOMAX [Concomitant]
     Active Substance: TAMSULOSIN HYDROCHLORIDE
     Indication: PROSTATE INFECTION
     Dosage: 0.4 MG, DAILY
  18. LYRICA [Suspect]
     Active Substance: PREGABALIN
     Indication: CANCER PAIN
     Dosage: 150 MG, 4X/DAY (150 MG TOTAL (1 CAPSULE) EVERY 6 HOURS)
     Route: 048
     Dates: start: 20160929

REACTIONS (3)
  - Intentional product misuse [Unknown]
  - Thermal burn [Recovered/Resolved]
  - Malaise [Unknown]

NARRATIVE: CASE EVENT DATE: 2018
